FAERS Safety Report 4771404-2 (Version None)
Quarter: 2005Q3

REPORT INFORMATION
  Report Type: 
  Country: None (occurrence: None)
  Receive Date: 20050914
  Receipt Date: 20050504
  Transmission Date: 20060218
  Serious: No
  Sender: FDA-Public Use
  Company Number: MED-05022

PATIENT
  Sex: Male

DRUGS (4)
  1. METOPROLOL TARTRATE [Suspect]
     Indication: CARDIAC DISORDER
     Dosage: 047
     Dates: start: 20050401
  2. METOPROLOL TARTRATE [Suspect]
     Indication: PROPHYLAXIS
     Dosage: 047
     Dates: start: 20050401
  3. HALDOL [Concomitant]
  4. ATIVAN [Concomitant]

REACTIONS (2)
  - CONFUSIONAL STATE [None]
  - CONVULSION [None]
